FAERS Safety Report 23562383 (Version 4)
Quarter: 2024Q2

REPORT INFORMATION
  Report Type: Spontaneous
  Country: JP (occurrence: JP)
  Receive Date: 20240226
  Receipt Date: 20240410
  Transmission Date: 20240716
  Serious: Yes (Death, Other)
  Sender: FDA-Public Use
  Company Number: JP-GENMAB-2024-00532

PATIENT
  Age: 75 Year
  Sex: Female

DRUGS (16)
  1. EPKINLY [Suspect]
     Active Substance: EPCORITAMAB-BYSP
     Indication: Diffuse large B-cell lymphoma
     Dosage: 0.16 MILLIGRAM, SINGLE
     Route: 058
     Dates: start: 20240130, end: 20240130
  2. EPKINLY [Suspect]
     Active Substance: EPCORITAMAB-BYSP
     Dosage: 0.8 MILLIGRAM, SINGLE
     Route: 058
     Dates: start: 20240206, end: 20240206
  3. EPKINLY [Suspect]
     Active Substance: EPCORITAMAB-BYSP
     Dosage: 4 MILLIGRAM, SINGLE
     Route: 058
     Dates: start: 20240215, end: 20240215
  4. ASPIRIN [Concomitant]
     Active Substance: ASPIRIN
     Indication: Carotid artery stenosis
     Dosage: UNK
     Route: 048
  5. VONOPRAZAN FUMARATE [Concomitant]
     Active Substance: VONOPRAZAN FUMARATE
     Dosage: UNK
  6. ROSUVASTATIN [Concomitant]
     Active Substance: ROSUVASTATIN
     Dosage: UNK
  7. ACYCLOVIR [Concomitant]
     Active Substance: ACYCLOVIR
     Dosage: UNK
  8. ETIZOLAM [Concomitant]
     Active Substance: ETIZOLAM
     Dosage: UNK
  9. ZOLPIDEM TARTRATE [Concomitant]
     Active Substance: ZOLPIDEM TARTRATE
     Dosage: UNK
  10. CALONAL [Concomitant]
     Active Substance: ACETAMINOPHEN
     Dosage: UNK
  11. BILASTINE [Concomitant]
     Active Substance: BILASTINE
     Dosage: UNK
  12. INSULIN GLARGINE [Concomitant]
     Active Substance: INSULIN GLARGINE
     Dosage: 5 UNITS BEFORE BED
  13. IRINOTECAN HYDROCHLORIDE [Concomitant]
     Active Substance: IRINOTECAN HYDROCHLORIDE
     Dosage: UNK, ADMINISTRATION DIVIDED INTO 2 DAYS
     Dates: start: 20240117, end: 20240118
  14. DECADRON [Concomitant]
     Active Substance: DEXAMETHASONE
     Indication: Prophylaxis
     Dosage: 4 MILLIGRAM, 4 TABLETS, ON DAY 1, DAY 2, DAY 3 AND DAY 4 OF ADMINISTRATION OF EPKINLY SUBCUTANEOUS I
     Route: 048
     Dates: start: 20240130, end: 20240218
  15. ACETAMINOPHEN [Concomitant]
     Active Substance: ACETAMINOPHEN
     Indication: Prophylaxis
     Dosage: 1000 MILLIGRAM, 2 HOURS BEFORE THE ADMINISTRATION
     Route: 041
     Dates: start: 20240130, end: 20240215
  16. POLARAMINE [Concomitant]
     Active Substance: DEXCHLORPHENIRAMINE MALEATE
     Indication: Prophylaxis
     Dosage: 1A?2 HOURS BEFORE THE ADMINISTRATION?
     Route: 041
     Dates: start: 20240130, end: 20240215

REACTIONS (16)
  - Cytokine release syndrome [Fatal]
  - Cardio-respiratory arrest [Fatal]
  - Renal impairment [Unknown]
  - Haemophagocytic lymphohistiocytosis [Unknown]
  - Bone marrow necrosis [Unknown]
  - Cytokine release syndrome [Recovered/Resolved]
  - Cytokine release syndrome [Recovered/Resolved]
  - Full blood count decreased [Unknown]
  - Blood creatine phosphokinase increased [Unknown]
  - Oxygen saturation decreased [Unknown]
  - Respiratory rate decreased [Unknown]
  - Serum ferritin increased [Unknown]
  - Multi-organ disorder [Unknown]
  - Pain in extremity [Unknown]
  - Platelet count decreased [Recovered/Resolved]
  - Intentional underdose [Unknown]

NARRATIVE: CASE EVENT DATE: 20240201
